FAERS Safety Report 9019457 (Version 2)
Quarter: 2013Q1

REPORT INFORMATION
  Report Type: Spontaneous
  Country: AR (occurrence: AR)
  Receive Date: 20130118
  Receipt Date: 20130213
  Transmission Date: 20140127
  Serious: Yes (Other)
  Sender: FDA-Public Use
  Company Number: AR-AMGEN-ARGSP2013003632

PATIENT
  Age: 63 Year
  Sex: Female

DRUGS (3)
  1. ENBREL [Suspect]
     Indication: RHEUMATOID ARTHRITIS
     Dosage: 25 MG, EVERY 15 DAYS
     Route: 058
     Dates: start: 20090314
  2. ENBREL [Suspect]
     Dosage: 25 MG, WEEKLY
  3. LEVOTHYROXINE [Concomitant]
     Dosage: UNK

REACTIONS (1)
  - Rheumatoid arthritis [Recovering/Resolving]
